FAERS Safety Report 25244241 (Version 1)
Quarter: 2025Q2

REPORT INFORMATION
  Report Type: Spontaneous
  Country: FR (occurrence: FR)
  Receive Date: 20250428
  Receipt Date: 20250428
  Transmission Date: 20250717
  Serious: Yes (Hospitalization, Other)
  Sender: HIKMA
  Company Number: FR-MLMSERVICE-20250408-PI466864-00249-1

PATIENT
  Age: 43 Year
  Sex: Female

DRUGS (10)
  1. HERBALS [Suspect]
     Active Substance: HERBALS
     Indication: Product used for unknown indication
     Route: 065
     Dates: start: 202311, end: 2023
  2. ACETAMINOPHEN [Concomitant]
     Active Substance: ACETAMINOPHEN
     Indication: Product used for unknown indication
     Dosage: 1000 MILLIGRAM, Q8H, THREE TIMES DAILY
     Route: 065
  3. ENOXAPARIN [Concomitant]
     Active Substance: ENOXAPARIN
     Indication: Anticoagulant therapy
     Dosage: 4000 INTERNATIONAL UNIT, QD
     Route: 065
     Dates: start: 20231116, end: 20231121
  4. FLUTICASONE [Concomitant]
     Active Substance: FLUTICASONE
     Indication: Rhinitis allergic
     Route: 065
  5. TRAMADOL [Concomitant]
     Active Substance: TRAMADOL
     Indication: Product used for unknown indication
     Dosage: 50 MILLIGRAM, Q8H, THREE TIMES DAILY
     Route: 065
  6. FLUOROURACIL [Interacting]
     Active Substance: FLUOROURACIL
     Indication: Colorectal cancer metastatic
     Dosage: 400 MILLIGRAM/SQ. METER, QOW
     Route: 042
     Dates: start: 202312
  7. LEUCOVORIN [Interacting]
     Active Substance: LEUCOVORIN\LEUCOVORIN CALCIUM
     Indication: Colorectal cancer metastatic
     Dosage: 400 MILLIGRAM/SQ. METER, QOW
     Route: 042
     Dates: start: 202312
  8. HERBALS [Interacting]
     Active Substance: HERBALS
     Indication: Product used for unknown indication
     Route: 065
     Dates: start: 202311, end: 2023
  9. IRINOTECAN [Interacting]
     Active Substance: IRINOTECAN
     Indication: Colorectal cancer metastatic
     Dosage: 180 MILLIGRAM/SQ. METER, QOW
     Route: 042
     Dates: start: 202312
  10. OXALIPLATIN [Interacting]
     Active Substance: OXALIPLATIN
     Indication: Colorectal cancer metastatic
     Dosage: 85 MILLIGRAM/SQ. METER, QOW
     Route: 065
     Dates: start: 202312

REACTIONS (3)
  - Hepatic cytolysis [Unknown]
  - Cholestasis [Unknown]
  - Drug interaction [Unknown]

NARRATIVE: CASE EVENT DATE: 20230101
